FAERS Safety Report 6859559-7 (Version None)
Quarter: 2010Q3

REPORT INFORMATION
  Report Type: 
  Country: None (occurrence: None)
  Receive Date: 20100719
  Receipt Date: 20080708
  Transmission Date: 20110219
  Serious: No
  Sender: FDA-Public Use
  Company Number: US-PFIZER INC-2008021014

PATIENT
  Sex: Female
  Weight: 59.1 kg

DRUGS (10)
  1. CHANTIX [Suspect]
     Indication: SMOKING CESSATION THERAPY
     Dates: start: 20080116
  2. LEXAPRO [Interacting]
     Indication: DEPRESSION
  3. LEVOTHYROXINE SODIUM [Concomitant]
  4. LISINOPRIL [Concomitant]
  5. ZETIA [Concomitant]
  6. INSULIN [Concomitant]
  7. VITAMIN D [Concomitant]
  8. LUMIGAN [Concomitant]
     Route: 047
  9. CICLOSPORIN [Concomitant]
  10. CYMBALTA [Concomitant]

REACTIONS (4)
  - DRUG INTERACTION [None]
  - FATIGUE [None]
  - VITAMIN B12 DEFICIENCY [None]
  - VITAMIN D DEFICIENCY [None]
